FAERS Safety Report 17449948 (Version 1)
Quarter: 2020Q1

REPORT INFORMATION
  Report Type: Spontaneous
  Country: US (occurrence: US)
  Receive Date: 20200207
  Receipt Date: 20200207
  Transmission Date: 20200409
  Serious: Yes (Hospitalization)
  Sender: FDA-Public Use
  Company Number: None

PATIENT
  Sex: Male

DRUGS (5)
  1. CITALOPRAM [Concomitant]
     Active Substance: CITALOPRAM HYDROBROMIDE
  2. LATANOPROST. [Concomitant]
     Active Substance: LATANOPROST
  3. TADALAFIL. [Concomitant]
     Active Substance: TADALAFIL
  4. SIMVASTATIN. [Concomitant]
     Active Substance: SIMVASTATIN
  5. TALTZ [Suspect]
     Active Substance: IXEKIZUMAB
     Indication: PSORIASIS
     Route: 058
     Dates: start: 20170918

REACTIONS (1)
  - Psoriasis [None]
